FAERS Safety Report 5424168-3 (Version None)
Quarter: 2007Q3

REPORT INFORMATION
  Report Type: 
  Country: None (occurrence: None)
  Receive Date: 20070823
  Receipt Date: 20070813
  Transmission Date: 20080115
  Serious: Yes (Hospitalization)
  Sender: FDA-Public Use
  Company Number: GB-PFIZER INC-2007067102

PATIENT
  Sex: Male

DRUGS (2)
  1. CARDURA [Suspect]
     Indication: CARDIAC DISORDER
     Route: 048
  2. CARDURA [Suspect]
     Indication: HYPERTENSION

REACTIONS (2)
  - GASTROINTESTINAL TUBE INSERTION [None]
  - SURGERY [None]
